FAERS Safety Report 4298716-3 (Version None)
Quarter: 2004Q1

REPORT INFORMATION
  Report Type: 
  Country: None (occurrence: None)
  Receive Date: 20040126
  Receipt Date: 20031028
  Transmission Date: 20041129
  Serious: No
  Sender: FDA-Public Use
  Company Number: USA031050951

PATIENT
  Age: 10 Year

DRUGS (1)
  1. STRATTERA [Suspect]

REACTIONS (1)
  - SUICIDAL IDEATION [None]
